FAERS Safety Report 7418744 (Version 2)
Quarter: 2012Q4

REPORT INFORMATION
  Report Type: Spontaneous
  Country: PL (occurrence: None)
  Receive Date: 20100607
  Receipt Date: 20120917
  Transmission Date: 20130627
  Serious: Yes (Hospitalization)
  Sender: FDA-Public Use
  Company Number: 2010002081

PATIENT
  Age: 69 Year
  Sex: Female
  Weight: 57 kg

DRUGS (9)
  1. ERLOTINIB [Suspect]
     Indication: LUNG NEOPLASM MALIGNANT
     Dosage: UID/QD
     Route: 048
     Dates: start: 20100419
  2. SOTALOL HYDROCHLORIDE [Concomitant]
  3. SERTRALINE [Concomitant]
  4. SIMVASTATIN [Concomitant]
  5. OMEPRAZOLE [Concomitant]
  6. RAMIPRIL [Concomitant]
  7. ALPRAZOLAM [Concomitant]
  8. BUDESONIDE [Concomitant]
  9. FORMOTEROL (FORMOTEROL) [Concomitant]

REACTIONS (3)
  - Respiratory tract haemorrhage [None]
  - Atrial fibrillation [None]
  - Atrial fibrillation [None]
